FAERS Safety Report 12874603 (Version 2)
Quarter: 2017Q1

REPORT INFORMATION
  Report Type: Spontaneous
  Country: US (occurrence: US)
  Receive Date: 20161021
  Receipt Date: 20170303
  Transmission Date: 20170428
  Serious: Yes (Other)
  Sender: FDA-Public Use
  Company Number: US-ALLERGAN-1521979US

PATIENT
  Age: 39 Year
  Sex: Male
  Weight: 95.24 kg

DRUGS (4)
  1. DALVANCE [Suspect]
     Active Substance: DALBAVANCIN
     Indication: GROIN ABSCESS
  2. BACTRIM [Concomitant]
     Active Substance: SULFAMETHOXAZOLE\TRIMETHOPRIM
     Indication: GROIN ABSCESS
     Dosage: UNK
     Dates: start: 20140824
  3. DALVANCE [Suspect]
     Active Substance: DALBAVANCIN
     Indication: CELLULITIS STAPHYLOCOCCAL
     Dosage: 1 GRAM
     Route: 041
     Dates: start: 20140826, end: 20140826
  4. DICLOXACILLIN [Concomitant]
     Active Substance: DICLOXACILLIN
     Indication: GROIN ABSCESS
     Dosage: UNK

REACTIONS (10)
  - Hypersensitivity [Recovered/Resolved]
  - Throat tightness [Recovered/Resolved]
  - Pruritus [Recovered/Resolved]
  - Oxygen saturation decreased [Recovered/Resolved]
  - Dyspnoea [Recovered/Resolved]
  - Urticaria [Recovered/Resolved]
  - Throat irritation [Recovered/Resolved]
  - Glossitis [Recovering/Resolving]
  - Malaise [Recovering/Resolving]
  - Rash macular [Recovered/Resolved]

NARRATIVE: CASE EVENT DATE: 20140826
